FAERS Safety Report 13792143 (Version 1)
Quarter: 2017Q3

REPORT INFORMATION
  Report Type: Spontaneous
  Country: GR (occurrence: GR)
  Receive Date: 20170725
  Receipt Date: 20170725
  Transmission Date: 20171127
  Serious: Yes (Hospitalization, Other)
  Sender: FDA-Public Use
  Company Number: GR-VALIDUS PHARMACEUTICALS LLC-GR-2017VAL001090

PATIENT
  Age: 7 Year
  Sex: Female

DRUGS (2)
  1. TEICOPLANIN [Suspect]
     Active Substance: TEICOPLANIN
     Indication: OSTEOMYELITIS BACTERIAL
     Dosage: UNK
     Route: 042
  2. CEFOTAXIME SODIUM [Suspect]
     Active Substance: CEFOTAXIME SODIUM
     Indication: OSTEOMYELITIS BACTERIAL
     Dosage: UNK
     Route: 042

REACTIONS (9)
  - Pain [Recovered/Resolved]
  - Joint swelling [Recovered/Resolved]
  - Pyrexia [Recovered/Resolved]
  - Red blood cell sedimentation rate increased [Recovered/Resolved]
  - Condition aggravated [Recovered/Resolved]
  - C-reactive protein increased [Recovered/Resolved]
  - Purulence [Recovered/Resolved]
  - Arthritis bacterial [Recovered/Resolved]
  - Drug ineffective [Unknown]
